FAERS Safety Report 17164916 (Version 1)
Quarter: 2019Q4

REPORT INFORMATION
  Report Type: Spontaneous
  Country: JP (occurrence: JP)
  Receive Date: 20191217
  Receipt Date: 20191217
  Transmission Date: 20200122
  Serious: Yes (Other)
  Sender: FDA-Public Use
  Company Number: JP-PFIZER INC-2019540306

PATIENT
  Age: 8 Decade
  Sex: Female

DRUGS (2)
  1. SELARA [Suspect]
     Active Substance: EPLERENONE
     Dosage: UNK
  2. ALDACTONE-A [Concomitant]
     Active Substance: SPIRONOLACTONE
     Dosage: UNK
     Route: 048

REACTIONS (1)
  - Renal cell carcinoma [Unknown]
